FAERS Safety Report 7035423-8 (Version None)
Quarter: 2010Q4

REPORT INFORMATION
  Report Type: 
  Country: None (occurrence: None)
  Receive Date: 20101008
  Receipt Date: 20100928
  Transmission Date: 20110411
  Serious: Yes (Other)
  Sender: FDA-Public Use
  Company Number: ES-PFIZER INC-2010123458

PATIENT
  Sex: Male

DRUGS (1)
  1. TRANKIMAZIN [Suspect]
     Dosage: UNK

REACTIONS (1)
  - ROAD TRAFFIC ACCIDENT [None]
